FAERS Safety Report 6216228-4 (Version None)
Quarter: 2009Q2

REPORT INFORMATION
  Report Type: 
  Country: None (occurrence: None)
  Receive Date: 20090605
  Receipt Date: 20090526
  Transmission Date: 20091009
  Serious: Yes (Hospitalization)
  Sender: FDA-Public Use
  Company Number: A0788657A

PATIENT
  Age: 66 Year
  Sex: Female
  Weight: 113.6 kg

DRUGS (9)
  1. AVANDIA [Suspect]
     Indication: TYPE 2 DIABETES MELLITUS
     Route: 048
     Dates: start: 20010101, end: 20060525
  2. ACTOS [Concomitant]
     Dates: start: 20030401
  3. GLUCOPHAGE [Concomitant]
     Dates: start: 20031024
  4. METFORMIN HYDROCHLORIDE [Concomitant]
     Dates: start: 20050108
  5. HYDROCHLOROTHIAZIDE [Concomitant]
     Dates: start: 20020101
  6. VIOXX [Concomitant]
     Dates: start: 20020101, end: 20040101
  7. BEXTRA [Concomitant]
     Dates: start: 20020101, end: 20040101
  8. LIPITOR [Concomitant]
     Dates: start: 20020101
  9. PROZAC [Concomitant]
     Dates: start: 20030101

REACTIONS (1)
  - CEREBROVASCULAR ACCIDENT [None]
